FAERS Safety Report 10811584 (Version 1)
Quarter: 2015Q1

REPORT INFORMATION
  Report Type: Report from Study
  Country: US (occurrence: US)
  Receive Date: 20150217
  Receipt Date: 20150217
  Transmission Date: 20150721
  Serious: No
  Sender: FDA-Public Use
  Company Number: US-ABBVIE-14K-163-1271436-00

PATIENT
  Age: 47 Year
  Sex: Female
  Weight: 112.14 kg

DRUGS (9)
  1. HUMIRA [Suspect]
     Active Substance: ADALIMUMAB
     Dates: start: 20140807
  2. DULOXETINE [Concomitant]
     Active Substance: DULOXETINE
     Indication: DEPRESSION
  3. LEVOTHYROXINE [Concomitant]
     Active Substance: LEVOTHYROXINE
     Indication: HYPOTHYROIDISM
  4. HUMIRA [Suspect]
     Active Substance: ADALIMUMAB
     Indication: CROHN^S DISEASE
     Dates: start: 201402, end: 201402
  5. LORATADINE. [Concomitant]
     Active Substance: LORATADINE
     Indication: HYPERSENSITIVITY
  6. HUMIRA [Suspect]
     Active Substance: ADALIMUMAB
     Dosage: STARTED 4 WKS AFTER 160MG DOSE
     Dates: start: 2014, end: 20140620
  7. HUMIRA [Suspect]
     Active Substance: ADALIMUMAB
     Dosage: STARTED AND END 2 WKS AFTER 160MG DOSE
     Dates: start: 2014, end: 2014
  8. HUMIRA [Suspect]
     Active Substance: ADALIMUMAB
     Dates: start: 20140717, end: 20140717
  9. LORATADINE. [Concomitant]
     Active Substance: LORATADINE
     Indication: SINUS CONGESTION

REACTIONS (2)
  - Sinusitis [Recovered/Resolved]
  - Lower respiratory tract infection [Recovered/Resolved]

NARRATIVE: CASE EVENT DATE: 201406
